FAERS Safety Report 6156207-9 (Version None)
Quarter: 2009Q2

REPORT INFORMATION
  Report Type: 
  Country: None (occurrence: None)
  Receive Date: 20090415
  Receipt Date: 20090403
  Transmission Date: 20091009
  Serious: Yes (Life-Threatening)
  Sender: FDA-Public Use
  Company Number: CH-PFIZER INC-2009193454

PATIENT

DRUGS (16)
  1. ZOLOFT [Suspect]
     Dosage: 25 MG, UNK
     Route: 048
     Dates: start: 20090114, end: 20090208
  2. ALDACTONE [Suspect]
     Dosage: 12.5 MG, 1X/DAY
     Route: 048
     Dates: start: 20081219, end: 20090225
  3. BACTRIM DS [Suspect]
     Dosage: 400 MG, 2X/DAY
     Route: 048
     Dates: start: 20090106, end: 20090114
  4. VANCOMYCIN HCL [Suspect]
     Dosage: 250 MG, 4X/DAY
     Dates: start: 20090123, end: 20090130
  5. DAFALGAN [Suspect]
     Dosage: 1000 MG, 3X/DAY
     Route: 048
     Dates: start: 20081219, end: 20090121
  6. TORASEMIDE [Suspect]
     Dosage: 10 MG, 2X/DAY
     Route: 048
     Dates: start: 20081215, end: 20090203
  7. ENALAPRIL MALEATE [Suspect]
     Dosage: 2.5 MG, 2X/DAY
     Route: 048
     Dates: start: 20081216, end: 20081230
  8. CO-AMOXI [Suspect]
     Dosage: 1200 MG, 2X/DAY
     Route: 042
     Dates: start: 20081230, end: 20090106
  9. TOLVON [Concomitant]
     Dosage: 15 MG, 1X/DAY
     Route: 048
     Dates: start: 20090206
  10. SEROQUEL [Concomitant]
     Dosage: 6.25 MG, 2X/DAY
     Route: 048
     Dates: start: 20090130
  11. EUTHYROX [Concomitant]
     Dosage: 100 UG, 1X/DAY
  12. DISTRANEURIN [Concomitant]
     Dosage: 384 MG, 1X/DAY
     Route: 048
  13. FLAGYL [Concomitant]
     Dosage: 250 MG, 4X/DAY
     Route: 048
     Dates: start: 20090116, end: 20090122
  14. CLEXANE [Concomitant]
     Dosage: 20 MG, 1X/DAY
     Route: 058
     Dates: start: 20081219, end: 20081231
  15. FOLVITE [Concomitant]
     Dosage: 5 MG, UNK
     Route: 048
     Dates: start: 20081219, end: 20090201
  16. CALCIMAGON [Concomitant]
     Dosage: 1 G, 1X/DAY
     Route: 048
     Dates: start: 20081219, end: 20090203

REACTIONS (1)
  - RENAL FAILURE [None]
